FAERS Safety Report 6509097-6 (Version None)
Quarter: 2009Q4

REPORT INFORMATION
  Report Type: 
  Country: None (occurrence: None)
  Receive Date: 20091221
  Receipt Date: 20091214
  Transmission Date: 20100525
  Serious: Yes (Life-Threatening)
  Sender: FDA-Public Use
  Company Number: GB-BAXTER-2009BH019470

PATIENT
  Age: 16 Year
  Sex: Female
  Weight: 50 kg

DRUGS (2)
  1. SODIUM CHLORIDE 0.9% IN PLASTIC CONTAINER [Suspect]
     Indication: DRUG USE FOR UNKNOWN INDICATION
     Route: 041
     Dates: start: 20091112, end: 20091112
  2. INDUCTOS [Suspect]
     Indication: SPINAL FUSION SURGERY
     Route: 065
     Dates: start: 20091112, end: 20091112

REACTIONS (1)
  - PULMONARY OEDEMA [None]
